FAERS Safety Report 21065074 (Version 5)
Quarter: 2022Q4

REPORT INFORMATION
  Report Type: Spontaneous
  Country: FR (occurrence: FR)
  Receive Date: 20220711
  Receipt Date: 20221107
  Transmission Date: 20230113
  Serious: Yes (Hospitalization, Disabling, Other)
  Sender: FDA-Public Use
  Company Number: FR-ORGANON-O2207FRA000540

PATIENT
  Sex: Female
  Weight: 80 kg

DRUGS (1)
  1. NEXPLANON [Suspect]
     Active Substance: ETONOGESTREL
     Indication: Contraception
     Dosage: 1 IMPLANT IN LEFT ARM
     Route: 059
     Dates: start: 20181219

REACTIONS (20)
  - Intervertebral disc disorder [Recovering/Resolving]
  - Cartilage injury [Unknown]
  - Spinal cord injury [Unknown]
  - Monoplegia [Unknown]
  - Device dislocation [Not Recovered/Not Resolved]
  - Coordination abnormal [Unknown]
  - Iron deficiency [Unknown]
  - Irritability [Unknown]
  - Feeling abnormal [Unknown]
  - Device issue [Not Recovered/Not Resolved]
  - Hypoaesthesia [Unknown]
  - Device placement issue [Not Recovered/Not Resolved]
  - Pain in extremity [Recovered/Resolved]
  - Complication associated with device [Recovered/Resolved]
  - Weight increased [Not Recovered/Not Resolved]
  - Intermenstrual bleeding [Unknown]
  - Fatigue [Unknown]
  - Alopecia [Unknown]
  - Incorrect product administration duration [Unknown]
  - Wrong technique in product usage process [Unknown]

NARRATIVE: CASE EVENT DATE: 20180101
